FAERS Safety Report 5430053-3 (Version None)
Quarter: 2007Q3

REPORT INFORMATION
  Report Type: 
  Country: None (occurrence: None)
  Receive Date: 20070829
  Receipt Date: 20070817
  Transmission Date: 20080115
  Serious: Yes (Other)
  Sender: FDA-Public Use
  Company Number: GB-PFIZER INC-2007069009

PATIENT
  Age: 42 Year
  Sex: Female

DRUGS (5)
  1. VARENICLINE TABLETS [Suspect]
     Indication: SMOKING CESSATION THERAPY
     Dosage: TEXT:0.5 MG
     Route: 048
     Dates: start: 20070803, end: 20070807
  2. FLUOXETINE [Concomitant]
     Route: 048
  3. HYDROXYCHLOROQUINE SULFATE [Concomitant]
     Route: 048
  4. ALL OTHER THERAPEUTIC PRODUCTS [Concomitant]
  5. TIBOLONE [Concomitant]
     Route: 048

REACTIONS (2)
  - DIARRHOEA HAEMORRHAGIC [None]
  - RECTAL HAEMORRHAGE [None]
